FAERS Safety Report 8327873-4 (Version None)
Quarter: 2012Q2

REPORT INFORMATION
  Report Type: 
  Country: None (occurrence: None)
  Receive Date: 20120502
  Receipt Date: 20110713
  Transmission Date: 20120825
  Serious: Yes (Hospitalization)
  Sender: FDA-Public Use
  Company Number: US-BAYER-2011-005638

PATIENT
  Age: 54 Year
  Sex: Female
  Weight: 68 kg

DRUGS (9)
  1. TELMISARTAN AND HYDROCHLOROTHIAZIDE [Concomitant]
  2. FEXOFENADINE [Concomitant]
  3. MONTELUKAST [Concomitant]
  4. BETASERON [Suspect]
     Dosage: 8 MIU, QOD
     Route: 058
     Dates: start: 20070401
  5. TELMISARTAN AND HYDROCHLOROTHIAZIDE [Concomitant]
  6. FELODIPINE [Concomitant]
  7. BETASERON [Suspect]
     Indication: RELAPSING-REMITTING MULTIPLE SCLEROSIS
     Dosage: 8 MIU, QOD
     Route: 058
     Dates: start: 20030414, end: 20070122
  8. CALCIUM [Concomitant]
  9. VITAMIN D [Concomitant]

REACTIONS (5)
  - PYREXIA [None]
  - NIGHT SWEATS [None]
  - BURNING SENSATION [None]
  - ANAEMIA [None]
  - GLOMUS TUMOUR [None]
